FAERS Safety Report 7918163-X (Version None)
Quarter: 2011Q4

REPORT INFORMATION
  Report Type: 
  Country: None (occurrence: None)
  Receive Date: 20111116
  Receipt Date: 20111107
  Transmission Date: 20120403
  Serious: Yes (Death)
  Sender: FDA-Public Use
  Company Number: US-ACTELION-A-NJ2011-56737

PATIENT

DRUGS (1)
  1. TRACLEER [Suspect]
     Indication: PULMONARY ARTERIAL HYPERTENSION
     Dosage: UNK
     Route: 048
     Dates: start: 20070720, end: 20111104

REACTIONS (3)
  - INTERSTITIAL LUNG DISEASE [None]
  - SCLERODERMA [None]
  - PULMONARY ARTERIAL HYPERTENSION [None]
